FAERS Safety Report 16969496 (Version 1)
Quarter: 2019Q4

REPORT INFORMATION
  Report Type: Spontaneous
  Country: FR (occurrence: FR)
  Receive Date: 20191029
  Receipt Date: 20191029
  Transmission Date: 20200122
  Serious: Yes (Hospitalization, Other)
  Sender: FDA-Public Use
  Company Number: FR-PFIZER INC-2019460180

PATIENT

DRUGS (6)
  1. VYXEOS [Suspect]
     Active Substance: CYTARABINE\DAUNORUBICIN
     Indication: ACUTE MYELOID LEUKAEMIA
     Dosage: 1 DF, UNK (1 IU/M2, UNK, DAYS 1, 3 + 5)
     Route: 042
     Dates: start: 20190228, end: 20190304
  2. CIPROFLOXACIN. [Suspect]
     Active Substance: CIPROFLOXACIN
     Dosage: 500 MG, 2X/DAY (TWICE A DAY)
     Route: 048
     Dates: start: 20190226, end: 20190228
  3. HYDROCORTISONE. [Suspect]
     Active Substance: HYDROCORTISONE
     Dosage: 20 MG, DAILY (EVERY 24 HOURS)
     Route: 048
     Dates: start: 20190227
  4. VYXEOS [Suspect]
     Active Substance: CYTARABINE\DAUNORUBICIN
     Dosage: 1 DF, UNK (1 IU/M2, UNK, DAYS 1 + 3)
     Route: 042
     Dates: start: 20190403, end: 20190405
  5. TAZOCILLINE [Suspect]
     Active Substance: PIPERACILLIN SODIUM\TAZOBACTAM SODIUM
     Dosage: 4 G, 3X/DAY
     Route: 042
     Dates: start: 20190226, end: 20190228
  6. TINZAPARIN [Suspect]
     Active Substance: TINZAPARIN
     Dosage: 1000 IU, 1X/DAY (EVERY DAY)
     Route: 058
     Dates: start: 20190226, end: 20190309

REACTIONS (21)
  - Pneumocystis jirovecii pneumonia [Unknown]
  - Rectal haemorrhage [Unknown]
  - Hallucination [Unknown]
  - Diarrhoea [Recovering/Resolving]
  - Hepatocellular injury [Unknown]
  - Haemoptysis [Unknown]
  - Device related infection [Unknown]
  - Urticaria [Unknown]
  - Haemorrhoids [Unknown]
  - Metabolic encephalopathy [Unknown]
  - Aphasia [Unknown]
  - Oedema [Unknown]
  - Chest pain [Unknown]
  - Clostridium test positive [Unknown]
  - Epistaxis [Unknown]
  - Rash vesicular [Unknown]
  - Blast cells present [Unknown]
  - Febrile bone marrow aplasia [Unknown]
  - Oedema peripheral [Unknown]
  - Urinary retention [Unknown]
  - Pyrexia [Unknown]

NARRATIVE: CASE EVENT DATE: 20190309
